FAERS Safety Report 16042855 (Version 2)
Quarter: 2019Q1

REPORT INFORMATION
  Report Type: Spontaneous
  Country: GB (occurrence: GB)
  Receive Date: 20190306
  Receipt Date: 20190314
  Transmission Date: 20190418
  Serious: Yes (Other)
  Sender: FDA-Public Use
  Company Number: GB-009507513-1903GBR001473

PATIENT
  Age: 29 Year
  Sex: Female

DRUGS (1)
  1. NEXPLANON [Suspect]
     Active Substance: ETONOGESTREL
     Indication: CONTRACEPTION
     Dosage: 1 IMPLANT IN UPPER ARM, FOR DURATION OF 3 YEARS
     Route: 059

REACTIONS (6)
  - Emotional disorder [Recovering/Resolving]
  - Irritability [Recovering/Resolving]
  - Depressed mood [Recovering/Resolving]
  - Suicidal ideation [Recovering/Resolving]
  - Anger [Recovering/Resolving]
  - Mood swings [Recovering/Resolving]
